FAERS Safety Report 21760719 (Version 1)
Quarter: 2022Q4

REPORT INFORMATION
  Report Type: Spontaneous
  Country: KR (occurrence: KR)
  Receive Date: 20221221
  Receipt Date: 20221221
  Transmission Date: 20230113
  Serious: No
  Sender: FDA-Public Use
  Company Number: KR-PFIZER INC-PV202200125866

PATIENT
  Age: 12 Year
  Sex: Male

DRUGS (2)
  1. GENOTROPIN [Suspect]
     Active Substance: SOMATROPIN
     Indication: Short stature
     Dosage: 8 IU, 6 TIMES A WEEK
     Dates: start: 2018
  2. GENOTROPIN [Suspect]
     Active Substance: SOMATROPIN
     Dosage: 8 IU, 6 TIMES A WEEK
     Dates: start: 2018

REACTIONS (3)
  - Device leakage [Unknown]
  - Device physical property issue [Unknown]
  - Poor quality device used [Unknown]
